FAERS Safety Report 7065208-8 (Version None)
Quarter: 2010Q4

REPORT INFORMATION
  Report Type: 
  Country: None (occurrence: None)
  Receive Date: 20101027
  Receipt Date: 20101022
  Transmission Date: 20110411
  Serious: No
  Sender: FDA-Public Use
  Company Number: US-TEVA-252759USA

PATIENT
  Sex: Female

DRUGS (7)
  1. AZILECT [Suspect]
     Indication: PARKINSON'S DISEASE
     Route: 048
     Dates: start: 20090101
  2. MIRTAZAPINE [Suspect]
  3. AMLODIPINE [Concomitant]
  4. LEVOTHYROXINE SODIUM [Concomitant]
  5. OMEPRAZOLE [Concomitant]
  6. SINEMET [Concomitant]
  7. OXYBUTYNIN [Concomitant]

REACTIONS (2)
  - SYNCOPE [None]
  - URINARY TRACT INFECTION [None]
